FAERS Safety Report 6742048-8 (Version None)
Quarter: 2010Q2

REPORT INFORMATION
  Report Type: 
  Country: None (occurrence: None)
  Receive Date: 20100524
  Receipt Date: 20100507
  Transmission Date: 20101027
  Serious: Yes (Hospitalization)
  Sender: FDA-Public Use
  Company Number: 015531

PATIENT
  Age: 39 Year
  Sex: Female
  Weight: 83 kg

DRUGS (8)
  1. PRIALT [Suspect]
     Indication: PAIN
     Dosage: 0.25 UG, ONCE/HOUR, INTRATHECAL
     Route: 037
     Dates: start: 20090101, end: 20100101
  2. LEVOTHYROXINE SODIUM [Concomitant]
  3. PANTOPRAZOLE SODIUM [Concomitant]
  4. ARCOXIA [Concomitant]
  5. CYMBALTA [Concomitant]
  6. LYRICA [Concomitant]
  7. KATADOLON /00830102/ (FLUPIRITINE MALEATE) [Concomitant]
  8. FLUCTINE (FLUOXETINE HYDROCHLORIDE) [Concomitant]

REACTIONS (3)
  - DEPRESSION [None]
  - DISSOCIATIVE AMNESIA [None]
  - SUICIDAL IDEATION [None]
